FAERS Safety Report 6148530-9 (Version None)
Quarter: 2009Q2

REPORT INFORMATION
  Report Type: 
  Country: None (occurrence: None)
  Receive Date: 20090408
  Receipt Date: 20090403
  Transmission Date: 20091009
  Serious: Yes (Death, Other)
  Sender: FDA-Public Use
  Company Number: JP-GILEAD-2008-0016255

PATIENT
  Sex: Female
  Weight: 19.7 kg

DRUGS (157)
  1. AMBISOME [Suspect]
     Indication: SYSTEMIC MYCOSIS
     Route: 041
     Dates: start: 20080423, end: 20080425
  2. AMBISOME [Suspect]
     Indication: PYELONEPHRITIS FUNGAL
     Route: 041
     Dates: start: 20080409, end: 20080422
  3. CIDOFOVIR [Suspect]
     Indication: VIRAL INFECTION
     Dates: start: 20080506
  4. CIDOFOVIR [Suspect]
     Dates: start: 20080423
  5. NEUTROGIN [Suspect]
     Indication: NEUTROPENIA
     Route: 042
     Dates: start: 20080415, end: 20080426
  6. NEUTROGIN [Suspect]
     Route: 041
     Dates: start: 20080427, end: 20080430
  7. TARGOCID [Suspect]
     Indication: INFECTION
     Route: 041
     Dates: start: 20080420, end: 20080425
  8. FOSCAVIR [Suspect]
     Indication: CYTOMEGALOVIRUS INFECTION
     Route: 041
     Dates: start: 20080415, end: 20080422
  9. PROGRAF [Suspect]
     Indication: PROPHYLAXIS AGAINST GRAFT VERSUS HOST DISEASE
     Route: 041
     Dates: end: 20080427
  10. VFEND [Concomitant]
     Dates: start: 20080407
  11. POTASSIUM CHLORIDE [Concomitant]
     Indication: HYPOKALAEMIA
  12. NEUTROGIN [Concomitant]
     Dates: start: 20080511, end: 20080511
  13. SOLU-MEDROL [Concomitant]
     Indication: PROPHYLAXIS AGAINST GRAFT VERSUS HOST DISEASE
     Route: 042
     Dates: end: 20080504
  14. ALPROSTADIL [Concomitant]
     Indication: HEPATIC VEIN OCCLUSION
     Route: 041
     Dates: end: 20080520
  15. ALPROSTADIL [Concomitant]
     Indication: PROPHYLAXIS
  16. PERDIPINE [Concomitant]
     Indication: HYPERTENSION
     Route: 041
     Dates: start: 20080504, end: 20080510
  17. PERDIPINE [Concomitant]
     Route: 041
     Dates: start: 20080427, end: 20080428
  18. PERDIPINE [Concomitant]
     Route: 041
     Dates: end: 20080426
  19. OMEPRAL [Concomitant]
     Indication: GASTRITIS PROPHYLAXIS
     Route: 042
     Dates: end: 20080515
  20. MORPHINE HYDROCLORIDE [Concomitant]
     Indication: PAIN
     Route: 042
     Dates: start: 20080515, end: 20080520
  21. MORPHINE HYDROCLORIDE [Concomitant]
     Indication: SEDATION
     Route: 042
     Dates: end: 20080428
  22. INOVAN [Concomitant]
     Indication: DIURETIC THERAPY
     Route: 041
     Dates: start: 20080423, end: 20080426
  23. INOVAN [Concomitant]
     Route: 041
     Dates: end: 20080422
  24. FIRSTCIN [Concomitant]
     Indication: INFECTION
     Route: 042
     Dates: start: 20080424, end: 20080427
  25. FIRSTCIN [Concomitant]
     Route: 042
     Dates: end: 20080417
  26. FULCALIQ 2 [Concomitant]
     Indication: FLUID REPLACEMENT
     Route: 041
     Dates: end: 20080425
  27. ELEMENMIC [Concomitant]
     Indication: MINERAL SUPPLEMENTATION
     Route: 041
     Dates: start: 20080426, end: 20080428
  28. ELEMENMIC [Concomitant]
     Route: 041
     Dates: end: 20080425
  29. NOVO HEPARIN [Concomitant]
     Indication: ANTICOAGULANT THERAPY
     Route: 041
     Dates: start: 20080426, end: 20080520
  30. NOVO HEPARIN [Concomitant]
     Route: 041
     Dates: end: 20080425
  31. SODIUM CHLORIDE [Concomitant]
     Indication: HYPONATRAEMIA
     Route: 042
     Dates: end: 20080425
  32. URSO 250 [Concomitant]
     Indication: PROPHYLAXIS
     Route: 048
     Dates: end: 20080425
  33. URSO 250 [Concomitant]
     Indication: HEPATIC FUNCTION ABNORMAL
  34. BAKTAR [Concomitant]
     Indication: INFECTION PROPHYLAXIS
     Route: 048
     Dates: end: 20080425
  35. AMOBAN [Concomitant]
     Indication: INSOMNIA
     Route: 048
     Dates: end: 20080426
  36. ALBUMIN (HUMAN) [Concomitant]
     Indication: HYPOALBUMINAEMIA
     Route: 042
     Dates: start: 20080513, end: 20080515
  37. ALBUMIN (HUMAN) [Concomitant]
     Route: 042
     Dates: start: 20080509, end: 20080511
  38. ALBUMIN (HUMAN) [Concomitant]
     Route: 042
     Dates: start: 20080503, end: 20080507
  39. ALBUMIN (HUMAN) [Concomitant]
     Route: 042
     Dates: start: 20080426, end: 20080427
  40. ALBUMIN (HUMAN) [Concomitant]
     Route: 042
     Dates: start: 20080424, end: 20080424
  41. ALBUMIN (HUMAN) [Concomitant]
     Route: 042
     Dates: start: 20080421, end: 20080421
  42. ALBUMIN (HUMAN) [Concomitant]
     Route: 042
     Dates: start: 20080416, end: 20080416
  43. ALBUMIN (HUMAN) [Concomitant]
     Route: 042
     Dates: start: 20080410, end: 20080413
  44. ATARAX [Concomitant]
     Indication: VOMITING
     Route: 042
     Dates: start: 20080503, end: 20080503
  45. ATARAX [Concomitant]
     Indication: INSOMNIA
     Route: 042
     Dates: start: 20080426, end: 20080426
  46. ATARAX [Concomitant]
     Indication: SEDATION
     Route: 042
     Dates: start: 20080423, end: 20080424
  47. ATARAX [Concomitant]
     Route: 042
     Dates: start: 20080420, end: 20080420
  48. ATARAX [Concomitant]
     Route: 042
     Dates: start: 20080416, end: 20080418
  49. ATARAX [Concomitant]
     Route: 042
     Dates: start: 20080411, end: 20080412
  50. KENKETSU VENOGLOBULIN-IH [Concomitant]
     Indication: THROMBOCYTOPENIA
     Route: 042
     Dates: start: 20080502, end: 20080502
  51. KENKETSU VENOGLOBULIN-IH [Concomitant]
     Route: 042
     Dates: start: 20080425, end: 20080425
  52. KENKETSU VENOGLOBULIN-IH [Concomitant]
     Route: 042
     Dates: start: 20080418, end: 20080418
  53. KENKETSU VENOGLOBULIN-IH [Concomitant]
     Route: 042
     Dates: start: 20080411, end: 20080411
  54. STERICLON W [Concomitant]
     Indication: PROPHYLAXIS URINARY TRACT INFECTION
     Dates: start: 20080414, end: 20080414
  55. NEUART [Concomitant]
     Indication: ANTICOAGULANT THERAPY
     Route: 042
     Dates: start: 20080512, end: 20080512
  56. NEUART [Concomitant]
     Route: 042
     Dates: start: 20080429, end: 20080430
  57. NEUART [Concomitant]
     Route: 042
     Dates: start: 20080414, end: 20080414
  58. ATROPINE SULFATE [Concomitant]
     Indication: URETERAL STENT INSERTION
     Route: 042
     Dates: start: 20080415, end: 20080415
  59. ATROPINE SULFATE [Concomitant]
     Indication: URETERAL STENT REMOVAL
  60. DORMICUM [Concomitant]
     Indication: URETERAL STENT INSERTION
     Route: 042
     Dates: start: 20080508, end: 20080508
  61. DORMICUM [Concomitant]
     Indication: URETERAL STENT REMOVAL
     Route: 042
     Dates: start: 20080505, end: 20080513
  62. DORMICUM [Concomitant]
     Indication: SEDATION
     Route: 042
     Dates: start: 20080504, end: 20080504
  63. DORMICUM [Concomitant]
     Route: 042
     Dates: start: 20080428, end: 20080502
  64. DORMICUM [Concomitant]
     Route: 042
     Dates: start: 20080415, end: 20080415
  65. KETALAR [Concomitant]
     Indication: URETERAL STENT INSERTION
     Route: 042
     Dates: start: 20080415, end: 20080415
  66. KETALAR [Concomitant]
     Indication: URETERAL STENT REMOVAL
  67. NEGMIN [Concomitant]
     Indication: URETERAL STENT INSERTION
     Dates: start: 20080422, end: 20080520
  68. NEGMIN [Concomitant]
     Indication: URETERAL STENT REMOVAL
     Route: 042
     Dates: start: 20080415, end: 20080415
  69. NEGMIN [Concomitant]
     Indication: INFECTION PROPHYLAXIS
  70. HYPOETHANOL [Concomitant]
     Indication: URETERAL STENT INSERTION
     Dates: start: 20080415, end: 20080415
  71. HYPOETHANOL [Concomitant]
     Indication: URETERAL STENT REMOVAL
  72. CARBENIN [Concomitant]
     Indication: INFECTION
     Route: 041
     Dates: start: 20080515, end: 20080520
  73. CARBENIN [Concomitant]
     Route: 041
     Dates: start: 20080417, end: 20080423
  74. LASIX [Concomitant]
     Indication: DIURETIC THERAPY
     Route: 042
     Dates: start: 20080512, end: 20080514
  75. LASIX [Concomitant]
     Route: 042
     Dates: start: 20080509, end: 20080510
  76. LASIX [Concomitant]
     Route: 042
     Dates: start: 20080506, end: 20080507
  77. LASIX [Concomitant]
     Route: 042
     Dates: start: 20080428, end: 20080428
  78. LASIX [Concomitant]
     Route: 042
     Dates: start: 20080427, end: 20080427
  79. LASIX [Concomitant]
     Route: 042
     Dates: start: 20080426, end: 20080426
  80. LASIX [Concomitant]
     Route: 042
     Dates: start: 20080425, end: 20080425
  81. LASIX [Concomitant]
     Route: 042
     Dates: start: 20080424, end: 20080424
  82. LASIX [Concomitant]
     Route: 042
     Dates: start: 20080421, end: 20080421
  83. LASIX [Concomitant]
     Route: 042
     Dates: start: 20080418, end: 20080418
  84. LASIX [Concomitant]
     Route: 042
     Dates: start: 20080417, end: 20080417
  85. LASIX [Concomitant]
     Dates: start: 20080427, end: 20080427
  86. ARTIFICIAL TEAR MYTEAR [Concomitant]
     Indication: CONJUNCTIVITIS
     Dates: start: 20080419, end: 20080520
  87. DEPAKENE [Concomitant]
     Indication: EPILEPSY
     Route: 048
     Dates: start: 20080422, end: 20080425
  88. DEPAKENE [Concomitant]
     Indication: PROPHYLAXIS
  89. BENECID [Concomitant]
     Indication: RENAL IMPAIRMENT
     Route: 048
     Dates: start: 20080510, end: 20080510
  90. BENECID [Concomitant]
     Route: 048
     Dates: start: 20080423, end: 20080425
  91. WHITE PETROLATUM [Concomitant]
     Indication: PRURITUS GENITAL
     Dates: start: 20080423, end: 20080520
  92. SOLDACTONE [Concomitant]
     Route: 042
     Dates: start: 20080424, end: 20080425
  93. ISOTONIC SODIUM CHLORIDE SOLUTION [Concomitant]
     Dates: start: 20080428, end: 20080501
  94. ISOTONIC SODIUM CHLORIDE SOLUTION [Concomitant]
     Dates: start: 20080502, end: 20080502
  95. ISOTONIC SODIUM CHLORIDE SOLUTION [Concomitant]
     Dates: start: 20080506, end: 20080506
  96. ISOTONIC SODIUM CHLORIDE SOLUTION [Concomitant]
     Dates: start: 20080509, end: 20080511
  97. OXYGEN [Concomitant]
     Route: 055
     Dates: start: 20080425
  98. 10% SODIUM CHLORIDE [Concomitant]
     Indication: FLUID REPLACEMENT
     Route: 042
     Dates: start: 20080512, end: 20080512
  99. 10% SODIUM CHLORIDE [Concomitant]
     Indication: ELECTROLYTE SUBSTITUTION THERAPY
     Route: 042
     Dates: start: 20080507, end: 20080516
  100. DOBUPUM [Concomitant]
     Indication: DIURETIC THERAPY
     Route: 041
     Dates: start: 20080425, end: 20080427
  101. SOLITA-T NO.1 [Concomitant]
     Indication: FLUID REPLACEMENT
     Route: 041
     Dates: start: 20080428, end: 20080429
  102. SOLITA-T NO.1 [Concomitant]
     Route: 041
     Dates: start: 20080426, end: 20080428
  103. HICALIQ RF [Concomitant]
     Indication: FLUID REPLACEMENT
     Route: 041
     Dates: start: 20080507, end: 20080516
  104. HICALIQ RF [Concomitant]
     Route: 041
     Dates: start: 20080426, end: 20080428
  105. MULTIVITAMIN ADDITIVE [Concomitant]
     Indication: FLUID REPLACEMENT
     Route: 041
     Dates: start: 20080507, end: 20080516
  106. MULTIVITAMIN ADDITIVE [Concomitant]
     Indication: VITAMIN SUPPLEMENTATION
     Route: 041
     Dates: start: 20080426, end: 20080428
  107. KIDMIN [Concomitant]
     Indication: SUPPLEMENTATION THERAPY
     Route: 041
     Dates: start: 20080507, end: 20080516
  108. KIDMIN [Concomitant]
     Indication: FLUID REPLACEMENT
     Route: 041
     Dates: start: 20080426, end: 20080428
  109. HANP [Concomitant]
     Indication: DIURETIC THERAPY
     Route: 041
     Dates: start: 20080512, end: 20080520
  110. HANP [Concomitant]
     Route: 041
     Dates: start: 20080501, end: 20080512
  111. HANP [Concomitant]
     Route: 041
     Dates: start: 20080427, end: 20080428
  112. HANP [Concomitant]
     Route: 041
     Dates: start: 20080426, end: 20080426
  113. MEROPENEM [Concomitant]
     Indication: INFECTION
     Route: 041
     Dates: start: 20080428, end: 20080503
  114. FUTHAN [Concomitant]
     Indication: PROPHYLAXIS
     Route: 041
     Dates: start: 20080428, end: 20080501
  115. FUTHAN [Concomitant]
     Indication: THROMBOSIS IN DEVICE
  116. MUSCULAX [Concomitant]
     Indication: SEDATION
     Route: 042
     Dates: start: 20080508, end: 20080508
  117. MUSCULAX [Concomitant]
     Route: 042
     Dates: start: 20080428, end: 20080428
  118. XYLOCAINE [Concomitant]
     Indication: SEDATION
     Route: 058
     Dates: start: 20080512, end: 20080512
  119. XYLOCAINE [Concomitant]
     Route: 058
     Dates: start: 20080509, end: 20080509
  120. XYLOCAINE [Concomitant]
     Route: 058
     Dates: start: 20080428, end: 20080428
  121. FRAGMIN [Concomitant]
     Indication: THROMBOSIS IN DEVICE
     Route: 041
     Dates: start: 20080428, end: 20080428
  122. FRAGMIN [Concomitant]
     Indication: PROPHYLAXIS
  123. CHLOR-TRIMETON [Concomitant]
     Route: 042
     Dates: start: 20080428, end: 20080516
  124. DEXTROSE 5% [Concomitant]
     Indication: ENTERAL NUTRITION
     Route: 041
     Dates: start: 20080511, end: 20080512
  125. DEXTROSE 5% [Concomitant]
     Dates: start: 20080510, end: 20080510
  126. DEXTROSE 5% [Concomitant]
     Indication: ELECTROLYTE SUBSTITUTION THERAPY
     Dates: start: 20080508, end: 20080508
  127. DEXTROSE 5% [Concomitant]
     Dates: start: 20080428, end: 20080428
  128. PENTAZOCINE LACTATE [Concomitant]
     Indication: SEDATION
     Route: 042
     Dates: start: 20080508, end: 20080508
  129. PENTAZOCINE LACTATE [Concomitant]
     Route: 042
     Dates: start: 20080428, end: 20080428
  130. NEOPAREN [Concomitant]
     Indication: FLUID REPLACEMENT
     Route: 041
     Dates: start: 20080429, end: 20080507
  131. METILON [Concomitant]
     Indication: PYREXIA
     Dates: start: 20080508, end: 20080508
  132. METILON [Concomitant]
     Dates: start: 20080505, end: 20080505
  133. METILON [Concomitant]
     Dates: start: 20080501, end: 20080502
  134. DIPRIVAN [Concomitant]
     Indication: SEDATION
     Route: 041
     Dates: start: 20080502, end: 20080503
  135. OMEGACIN [Concomitant]
     Indication: INFECTION
     Route: 041
     Dates: start: 20080503, end: 20080515
  136. LINTON [Concomitant]
     Indication: SEDATION
     Route: 042
     Dates: start: 20080512, end: 20080512
  137. LINTON [Concomitant]
     Route: 042
     Dates: start: 20080503, end: 20080503
  138. FUNGUARD [Concomitant]
     Indication: FUNGAL INFECTION
     Route: 041
     Dates: start: 20080504, end: 20080520
  139. FUNGUARD [Concomitant]
     Indication: PROPHYLAXIS
  140. PRECEDEX [Concomitant]
     Indication: SEDATION
     Route: 042
     Dates: start: 20080504, end: 20080505
  141. LEPETAN [Concomitant]
     Indication: SEDATION
     Dates: start: 20080512, end: 20080512
  142. LEPETAN [Concomitant]
     Dates: start: 20080510, end: 20080510
  143. LEPETAN [Concomitant]
     Dates: start: 20080508, end: 20080508
  144. MEYLON [Concomitant]
     Indication: METABOLIC ACIDOSIS
     Route: 042
     Dates: start: 20080519, end: 20080520
  145. MEYLON [Concomitant]
     Route: 042
     Dates: start: 20080513, end: 20080513
  146. MEYLON [Concomitant]
     Route: 042
     Dates: start: 20080511, end: 20080511
  147. MEYLON [Concomitant]
     Route: 042
     Dates: start: 20080507, end: 20080507
  148. DISTILLED WATER [Concomitant]
     Indication: FLUID REPLACEMENT
     Route: 041
     Dates: start: 20080507, end: 20080516
  149. ONCLAST [Concomitant]
     Indication: HYPERCALCAEMIA
     Route: 041
     Dates: start: 20080510, end: 20080510
  150. CONCLYTE MG [Concomitant]
     Indication: ELECTROLYTE SUBSTITUTION THERAPY
     Route: 041
     Dates: start: 20080512, end: 20080512
  151. BICARBON [Concomitant]
     Indication: SUPPLEMENTATION THERAPY
     Route: 041
     Dates: start: 20080512, end: 20080519
  152. DALACIN-P [Concomitant]
     Indication: INFECTION
     Route: 041
     Dates: start: 20080514, end: 20080520
  153. ANHIBA [Concomitant]
     Indication: PYREXIA
     Route: 054
     Dates: start: 20080516, end: 20080516
  154. SOLITA-T NO.4 [Concomitant]
     Indication: FLUID REPLACEMENT
     Route: 041
     Dates: start: 20080516, end: 20080520
  155. VITAMEDIN [Concomitant]
     Indication: FLUID REPLACEMENT
     Route: 041
     Dates: start: 20080516, end: 20080520
  156. PREDONINE [Concomitant]
     Indication: PYREXIA
     Route: 042
     Dates: start: 20080516, end: 20080520
  157. HYDROCORTISONE 10MG TAB [Concomitant]
     Indication: PYREXIA
     Dates: start: 20080518, end: 20080519

REACTIONS (4)
  - BLOOD BILIRUBIN INCREASED [None]
  - BLOOD POTASSIUM DECREASED [None]
  - RENAL FAILURE [None]
  - RESPIRATORY FAILURE [None]
